FAERS Safety Report 15144988 (Version 1)
Quarter: 2018Q3

REPORT INFORMATION
  Report Type: Spontaneous
  Country: US (occurrence: US)
  Receive Date: 20180713
  Receipt Date: 20180713
  Transmission Date: 20181010
  Serious: Yes (Death, Life-Threatening, Other)
  Sender: FDA-Public Use
  Company Number: US-SA-2018SA180677

PATIENT
  Age: 39 Year
  Sex: Male

DRUGS (6)
  1. GABAPENTIN. [Concomitant]
     Active Substance: GABAPENTIN
     Dosage: UNK
  2. LIDOCAINE HYDROCHLORIDE. [Suspect]
     Active Substance: LIDOCAINE HYDROCHLORIDE
     Indication: PAIN
     Dosage: UNK
     Route: 045
  3. IBUPROFEN. [Concomitant]
     Active Substance: IBUPROFEN
  4. LIDOCAINE HYDROCHLORIDE. [Suspect]
     Active Substance: LIDOCAINE HYDROCHLORIDE
     Dosage: TOPICAL SOLUTION INTRANASALLY (26 G LIDOCAINE)
     Route: 045
  5. SULFAMETHOXAZOLE AND TRIMETHOPRIM [Concomitant]
     Active Substance: SULFAMETHOXAZOLE\TRIMETHOPRIM
     Dosage: UNK
  6. CYCLOBENZAPRINE. [Concomitant]
     Active Substance: CYCLOBENZAPRINE

REACTIONS (5)
  - Cerebrovascular accident [Fatal]
  - Embolism [Fatal]
  - Toxicity to various agents [Fatal]
  - Acute respiratory failure [Fatal]
  - Brain stem syndrome [Fatal]
